FAERS Safety Report 4269964-3 (Version None)
Quarter: 2004Q1

REPORT INFORMATION
  Report Type: 
  Country: None (occurrence: None)
  Receive Date: 20040112
  Receipt Date: 20031231
  Transmission Date: 20041129
  Serious: Yes (Hospitalization)
  Sender: FDA-Public Use
  Company Number: 03P-163-0240367-00

PATIENT
  Age: 71 Year
  Sex: Female
  Weight: 52.1637 kg

DRUGS (6)
  1. HUMIRA [Suspect]
     Indication: RHEUMATOID ARTHRITIS
     Dosage: 40 MG, 1 IN 2 WK, SUBCUTANEOUS
     Route: 058
     Dates: start: 20031027, end: 20031027
  2. LOSARTAN POTASSIUM [Concomitant]
  3. PREDNISONE [Concomitant]
  4. DYAZIDE [Concomitant]
  5. ESTROGENS CONJUGATED [Concomitant]
  6. VICODIN [Concomitant]

REACTIONS (2)
  - HAEMATOMA [None]
  - RETROPERITONEAL HAEMATOMA [None]
